FAERS Safety Report 7362123-7 (Version None)
Quarter: 2011Q1

REPORT INFORMATION
  Report Type: 
  Country: None (occurrence: None)
  Receive Date: 20110318
  Receipt Date: 20110311
  Transmission Date: 20110831
  Serious: Yes (Other)
  Sender: FDA-Public Use
  Company Number: JP-B.I. PHARMACEUTICALS,INC./RIDGEFIELD-2011-BP-05077NB

PATIENT
  Sex: Male
  Weight: 71.5 kg

DRUGS (2)
  1. BI-SIFROL TABLETS [Suspect]
     Indication: RESTLESS LEGS SYNDROME
     Dosage: 0.25 MG
     Route: 048
     Dates: start: 20101203, end: 20110114
  2. ROTIGOTINE [Suspect]
     Indication: RESTLESS LEGS SYNDROME
     Route: 062
     Dates: start: 20100101, end: 20101122

REACTIONS (1)
  - IMPULSE-CONTROL DISORDER [None]
